FAERS Safety Report 4363340-0 (Version None)
Quarter: 2004Q2

REPORT INFORMATION
  Report Type: 
  Country: None (occurrence: None)
  Receive Date: 20040517
  Receipt Date: 20040211
  Transmission Date: 20050107
  Serious: No
  Sender: FDA-Public Use
  Company Number: S04-USA-00575-01

PATIENT
  Age: 60 Year
  Sex: Male

DRUGS (6)
  1. NAMENDA [Suspect]
     Indication: DEMENTIA ALZHEIMER'S TYPE
     Dosage: 10 MG QD PO
     Route: 048
     Dates: start: 20040210
  2. AMANTADINE HCL [Concomitant]
  3. SINEMET [Concomitant]
  4. REQUIP [Concomitant]
  5. COMTAN [Concomitant]
  6. PAXIL [Concomitant]

REACTIONS (1)
  - TREMOR [None]
